FAERS Safety Report 5767100-5 (Version None)
Quarter: 2008Q2

REPORT INFORMATION
  Report Type: 
  Country: None (occurrence: None)
  Receive Date: 20080606
  Receipt Date: 20080526
  Transmission Date: 20081010
  Serious: Yes (Hospitalization)
  Sender: FDA-Public Use
  Company Number: 2007-03986

PATIENT
  Age: 57 Year
  Sex: Male
  Weight: 81.6 kg

DRUGS (4)
  1. VELCADE [Suspect]
     Indication: MULTIPLE MYELOMA
     Dosage: 2.7 MG, INTRAVENOUS
     Route: 042
     Dates: start: 20070102, end: 20071116
  2. PANTOPRAZOLE SODIUM [Concomitant]
  3. ACYCLOVIR [Concomitant]
  4. METOPROLOL SUCCINATE [Concomitant]

REACTIONS (2)
  - MIDDLE EAR EFFUSION [None]
  - RHINITIS ATROPHIC [None]
